FAERS Safety Report 15843585 (Version 1)
Quarter: 2019Q1

REPORT INFORMATION
  Report Type: Spontaneous
  Country: DE (occurrence: DE)
  Receive Date: 20190118
  Receipt Date: 20190118
  Transmission Date: 20190417
  Serious: Yes (Other)
  Sender: FDA-Public Use
  Company Number: DE-BAYER-2019-009291

PATIENT
  Age: 47 Year
  Sex: Female
  Weight: 65 kg

DRUGS (1)
  1. CIPROBAY 500 MG [Suspect]
     Active Substance: CIPROFLOXACIN

REACTIONS (9)
  - Chest pain [None]
  - Inflammatory bowel disease [None]
  - Heart rate increased [None]
  - Nervous system disorder [None]
  - Diverticulum intestinal [None]
  - Abdominal pain [None]
  - Candida infection [None]
  - Tendon pain [None]
  - Panic attack [None]
